FAERS Safety Report 7002321-5 (Version None)
Quarter: 2010Q3

REPORT INFORMATION
  Report Type: 
  Country: None (occurrence: None)
  Receive Date: 20100920
  Receipt Date: 20100916
  Transmission Date: 20110219
  Serious: Yes (Death, Hospitalization, Other)
  Sender: FDA-Public Use
  Company Number: DE-ASTRAZENECA-2010SE43550

PATIENT
  Age: 76 Year
  Sex: Female
  Weight: 78 kg

DRUGS (6)
  1. ATACAND HCT [Suspect]
     Indication: HYPERTENSION
     Dosage: 16/12.5 MG, 1X1 TABLET DAILY
     Route: 048
     Dates: start: 20000101, end: 20100419
  2. ATACAND [Suspect]
     Indication: HYPERTENSION
     Route: 048
     Dates: start: 20091101, end: 20100419
  3. DICLAC [Suspect]
     Route: 048
     Dates: start: 20100222, end: 20100419
  4. CIPROFLOXACIN [Suspect]
     Indication: DIVERTICULITIS
     Route: 048
     Dates: start: 20100416, end: 20100419
  5. MESALAMINE [Suspect]
     Indication: DIVERTICULITIS
     Dosage: 2G/30 ML, 1X1 ENEMA DAILY
     Route: 054
     Dates: start: 20100326, end: 20100415
  6. IBUPROFEN [Suspect]
     Dosage: NEARLY 300 MG (1X 0.5 TABLET) EVERY FOURTH DAY
     Route: 048
     Dates: start: 20070101, end: 20100405

REACTIONS (3)
  - COLITIS [None]
  - RENAL FAILURE ACUTE [None]
  - SEPTIC SHOCK [None]
